FAERS Safety Report 20214151 (Version 1)
Quarter: 2021Q4

REPORT INFORMATION
  Report Type: Spontaneous
  Country: US (occurrence: None)
  Receive Date: 20211221
  Receipt Date: 20211221
  Transmission Date: 20220303
  Serious: No
  Sender: FDA-Public Use
  Company Number: None

PATIENT
  Age: 33 Year
  Sex: Female
  Weight: 58.97 kg

DRUGS (1)
  1. PARAGARD T 380A [Suspect]
     Active Substance: COPPER

REACTIONS (9)
  - Abdominal pain [None]
  - Palpitations [None]
  - Insomnia [None]
  - Hot flush [None]
  - Premenstrual dysphoric disorder [None]
  - Hormone level abnormal [None]
  - Tension headache [None]
  - Migraine [None]
  - Toxicity to various agents [None]

NARRATIVE: CASE EVENT DATE: 20210211
